FAERS Safety Report 5302442-9 (Version None)
Quarter: 2007Q2

REPORT INFORMATION
  Report Type: 
  Country: None (occurrence: None)
  Receive Date: 20070413
  Receipt Date: 20070403
  Transmission Date: 20071010
  Serious: Yes (Death)
  Sender: FDA-Public Use
  Company Number: GXKR2007JP03142

PATIENT
  Age: 43 Year
  Sex: Female
  Weight: 57 kg

DRUGS (6)
  1. AMOXAPINE [Suspect]
     Indication: DEPRESSION
     Dosage: ORAL
     Route: 048
  2. LEVOMEPROMAZINE (NGX)(LEVOMEPROMAZINE) UNKNOWN [Suspect]
     Indication: DEPRESSION
  3. ANTIDEPRESSANTS (NO INGREDIENTS/SUBSTANCES) [Concomitant]
  4. ANTIPSYCHOTICS (NO INGREDIENTS/SUBSTANCES) [Concomitant]
  5. ANXIOLYTICS (NO INGREDIENTS/SUBSTANCES) [Concomitant]
  6. HYPNOTICS AND SEDATIVES (NO INGREDIENTS/SUBSTANCES) [Concomitant]

REACTIONS (9)
  - CARDIAC FAILURE CHRONIC [None]
  - COMPLETED SUICIDE [None]
  - DRUG INTERACTION [None]
  - DRUG TOXICITY [None]
  - INTENTIONAL OVERDOSE [None]
  - INTENTIONAL SELF-INJURY [None]
  - PULMONARY CONGESTION [None]
  - PULMONARY OEDEMA [None]
  - SKIN LACERATION [None]
